FAERS Safety Report 8435907-1 (Version None)
Quarter: 2012Q2

REPORT INFORMATION
  Report Type: 
  Country: None (occurrence: None)
  Receive Date: 20120614
  Receipt Date: 20120606
  Transmission Date: 20120825
  Serious: Yes (Other)
  Sender: FDA-Public Use
  Company Number: DE-SANOFI-AVENTIS-2011SA062187

PATIENT
  Age: 28 Year
  Sex: Female
  Weight: 51.5 kg

DRUGS (11)
  1. MAGNESIUM [Concomitant]
     Route: 048
     Dates: start: 20110917
  2. ENOXAPARIN SODIUM [Suspect]
     Route: 058
     Dates: start: 20110909
  3. FOLIC ACID/IODINE/MINERALS NOS/VITAMINS NOS [Concomitant]
     Route: 048
     Dates: start: 20110913
  4. HAEMOPROTECT [Concomitant]
     Route: 048
     Dates: start: 20110920
  5. LEUCOVORIN CALCIUM [Concomitant]
     Indication: PREGNANCY
     Route: 048
     Dates: start: 20110718, end: 20110817
  6. FRESH FROZEN PLASMA [Concomitant]
     Dates: start: 20120309, end: 20120309
  7. FIBRINOGEN [Concomitant]
     Dates: start: 20120309, end: 20120309
  8. AMPICILLIN W/SULBACTAM [Concomitant]
     Dates: start: 20120301, end: 20120301
  9. FERROUS SULFATE TAB [Concomitant]
     Dates: start: 20120101
  10. RED BLOOD CELLS, CONCENTRATED [Concomitant]
     Route: 065
     Dates: start: 20120309, end: 20120309
  11. FOLIC ACID/IODINE/MINERALS NOS/VITAMINS NOS [Concomitant]
     Indication: PREGNANCY
     Route: 048
     Dates: start: 20110818, end: 20110912

REACTIONS (7)
  - MATERNAL EXPOSURE DURING PREGNANCY [None]
  - COAGULOPATHY [None]
  - HYPERSENSITIVITY [None]
  - ANAEMIA [None]
  - FOETAL GROWTH RESTRICTION [None]
  - THROMBOCYTOPENIA [None]
  - HAEMATOMA [None]
